FAERS Safety Report 22541578 (Version 6)
Quarter: 2023Q4

REPORT INFORMATION
  Report Type: Report from Study
  Country: US (occurrence: None)
  Receive Date: 20230609
  Receipt Date: 20231010
  Transmission Date: 20240109
  Serious: Yes (Life-Threatening, Hospitalization)
  Sender: FDA-Public Use
  Company Number: US-ROCHE-3362927

PATIENT
  Age: 25 Year
  Sex: Female
  Weight: 64.2 kg

DRUGS (15)
  1. OBINUTUZUMAB [Suspect]
     Active Substance: OBINUTUZUMAB
     Indication: Lupus nephritis
     Dosage: RECEIVED MOST RECENT DOSE OF STUDY DRUG PRIOR TO ADVERSE EVENT ON 23/JAN/2023 FROM 9:44 AM TO 10:13
     Route: 042
     Dates: start: 20230109
  2. MYCOPHENOLATE MOFETIL [Suspect]
     Active Substance: MYCOPHENOLATE MOFETIL
     Indication: Lupus nephritis
     Dosage: RECEIVED MOST RECENT DOSE 2500 MG OF STUDY DRUG PRIOR TO ADVERSE EVENT ON 03/JUN/2023
     Route: 048
     Dates: start: 20230109
  3. HYDROXYCHLOROQUINE [Suspect]
     Active Substance: HYDROXYCHLOROQUINE
     Indication: Lupus nephritis
     Route: 048
     Dates: start: 20210804
  4. BACTRIM [Concomitant]
     Active Substance: SULFAMETHOXAZOLE\TRIMETHOPRIM
     Indication: Lupus nephritis
     Route: 048
     Dates: start: 20210807
  5. BUMETANIDE [Concomitant]
     Active Substance: BUMETANIDE
     Indication: Lupus nephritis
     Route: 048
     Dates: start: 20221109
  6. LISINOPRIL [Concomitant]
     Active Substance: LISINOPRIL
     Indication: Lupus nephritis
     Route: 048
     Dates: start: 20220415
  7. OMEPRAZOLE [Concomitant]
     Active Substance: OMEPRAZOLE
     Route: 048
     Dates: start: 20221028
  8. ONDANSETRON [Concomitant]
     Active Substance: ONDANSETRON
     Indication: Lupus nephritis
     Route: 048
     Dates: start: 20221014
  9. ONDANSETRON [Concomitant]
     Active Substance: ONDANSETRON
     Indication: Febrile neutropenia
  10. TYLENOL [Concomitant]
     Active Substance: ACETAMINOPHEN
     Indication: Nasopharyngitis
     Route: 048
     Dates: start: 20230205
  11. TYLENOL [Concomitant]
     Active Substance: ACETAMINOPHEN
     Indication: Febrile neutropenia
     Route: 048
     Dates: start: 20230604, end: 20230614
  12. VICKS NYQUIL [Concomitant]
     Active Substance: ACETAMINOPHEN\DEXTROMETHORPHAN HYDROBROMIDE\DOXYLAMINE SUCCINATE
     Indication: Nasopharyngitis
     Route: 048
     Dates: start: 20230205
  13. PREDNISONE [Concomitant]
     Active Substance: PREDNISONE
     Indication: Lupus nephritis
     Route: 048
     Dates: start: 20230221
  14. PREDNISONE [Concomitant]
     Active Substance: PREDNISONE
     Route: 048
     Dates: start: 20230418, end: 20230529
  15. PREDNISONE [Concomitant]
     Active Substance: PREDNISONE
     Route: 048
     Dates: start: 20230605

REACTIONS (1)
  - Febrile neutropenia [Recovered/Resolved]

NARRATIVE: CASE EVENT DATE: 20230604
